FAERS Safety Report 7733533-0 (Version None)
Quarter: 2011Q3

REPORT INFORMATION
  Report Type: 
  Country: None (occurrence: None)
  Receive Date: 20110907
  Receipt Date: 20110907
  Transmission Date: 20111222
  Serious: Yes (Life-Threatening, Hospitalization, Other)
  Sender: FDA-Public Use
  Company Number: None

PATIENT
  Age: 53 Year
  Sex: Female
  Weight: 70.306 kg

DRUGS (1)
  1. LEVAQUIN [Suspect]
     Indication: PNEUMONIA
     Route: 048
     Dates: start: 20080101, end: 20080101

REACTIONS (16)
  - FALL [None]
  - FATIGUE [None]
  - CONVULSION [None]
  - VISION BLURRED [None]
  - FEELING ABNORMAL [None]
  - HALLUCINATION [None]
  - GENERAL PHYSICAL HEALTH DETERIORATION [None]
  - MEMORY IMPAIRMENT [None]
  - GAIT DISTURBANCE [None]
  - VISUAL IMPAIRMENT [None]
  - CONFUSIONAL STATE [None]
  - APHASIA [None]
  - MOVEMENT DISORDER [None]
  - DISTURBANCE IN ATTENTION [None]
  - LIVER DISORDER [None]
  - BALANCE DISORDER [None]
